FAERS Safety Report 17365023 (Version 1)
Quarter: 2020Q1

REPORT INFORMATION
  Report Type: Report from Study
  Country: None (occurrence: US)
  Receive Date: 20200204
  Receipt Date: 20200204
  Transmission Date: 20200409
  Serious: Yes (Other)
  Sender: FDA-Public Use
  Company Number: US-ABBVIE-20P-163-3257130-00

PATIENT
  Sex: Male

DRUGS (4)
  1. IMBRUVICA [Suspect]
     Active Substance: IBRUTINIB
     Indication: LYMPHOCYTIC LEUKAEMIA
     Dosage: 140 MG PER 1 WEEK
     Route: 048
     Dates: start: 20180516
  2. IMBRUVICA [Suspect]
     Active Substance: IBRUTINIB
     Dosage: 2 CAPS PER 1 WEEK
     Route: 048
  3. IMBRUVICA [Suspect]
     Active Substance: IBRUTINIB
     Dosage: 420 MG DAILY
     Route: 048
  4. IMBRUVICA [Suspect]
     Active Substance: IBRUTINIB
     Indication: LYMPHOCYTIC LEUKAEMIA
     Route: 048
     Dates: start: 20180615

REACTIONS (1)
  - Cataract [Unknown]
